FAERS Safety Report 4777707-X (Version None)
Quarter: 2005Q3

REPORT INFORMATION
  Report Type: 
  Country: None (occurrence: None)
  Receive Date: 20050921
  Receipt Date: 20050831
  Transmission Date: 20060218
  Serious: Yes (Hospitalization, Other)
  Sender: FDA-Public Use
  Company Number: USA0508104359

PATIENT
  Age: 59 Year
  Sex: Female

DRUGS (15)
  1. ZYPREXA [Suspect]
     Indication: SCHIZOAFFECTIVE DISORDER
     Dosage: 10 MG AT BEDTIME
  2. LEXAPRO [Concomitant]
  3. XANAX [Concomitant]
  4. DULCOLAX [Concomitant]
  5. DEPAKOTE [Concomitant]
  6. COLACE (DOCUSATE SODIUM) [Concomitant]
  7. NAPROSYN [Concomitant]
  8. NEXIUM [Concomitant]
  9. SEROQUEL [Concomitant]
  10. LEVOTHYROXINE SODIUM [Concomitant]
  11. RAPTIVA [Concomitant]
  12. SENNA [Concomitant]
  13. BENZATROPINE [Concomitant]
  14. FLUPHENAZINE DECANOATE [Concomitant]
  15. METHOTREXATE [Concomitant]

REACTIONS (2)
  - INTESTINAL OBSTRUCTION [None]
  - ORAL INTAKE REDUCED [None]
